FAERS Safety Report 25739535 (Version 2)
Quarter: 2025Q3

REPORT INFORMATION
  Report Type: Spontaneous
  Country: US (occurrence: US)
  Receive Date: 20250829
  Receipt Date: 20250910
  Transmission Date: 20251021
  Serious: Yes (Other)
  Sender: VIIV
  Company Number: US-VIIV HEALTHCARE ULC-US2025109327

PATIENT
  Age: 36 Year
  Sex: Male

DRUGS (3)
  1. CABOTEGRAVIR [Suspect]
     Active Substance: CABOTEGRAVIR
     Indication: Prophylaxis against HIV infection
  2. CABOTEGRAVIR [Suspect]
     Active Substance: CABOTEGRAVIR
  3. CABOTEGRAVIR [Suspect]
     Active Substance: CABOTEGRAVIR

REACTIONS (2)
  - HIV infection [Unknown]
  - Drug ineffective [Unknown]

NARRATIVE: CASE EVENT DATE: 20250820
